FAERS Safety Report 13377937 (Version 1)
Quarter: 2017Q1

REPORT INFORMATION
  Report Type: Spontaneous
  Country: US (occurrence: US)
  Receive Date: 20170328
  Receipt Date: 20170328
  Transmission Date: 20170429
  Serious: Yes (Other)
  Sender: FDA-Public Use
  Company Number: US-TEVA-752981USA

PATIENT
  Age: 79 Year
  Sex: Female

DRUGS (1)
  1. GABAPENTIN. [Suspect]
     Active Substance: GABAPENTIN
     Dosage: 1200 MG/DAY
     Route: 065

REACTIONS (4)
  - Dizziness [Recovered/Resolved]
  - Fall [Unknown]
  - Asthenia [Recovered/Resolved]
  - Toxicity to various agents [Recovered/Resolved]
